FAERS Safety Report 15323653 (Version 1)
Quarter: 2018Q3

REPORT INFORMATION
  Report Type: Spontaneous
  Country: DE (occurrence: DE)
  Receive Date: 20180827
  Receipt Date: 20180827
  Transmission Date: 20181010
  Serious: Yes (Other)
  Sender: FDA-Public Use
  Company Number: DE-BAXTER-2018BAX022085

PATIENT
  Age: 31 Month
  Sex: Female

DRUGS (2)
  1. DACARBAZINE. [Concomitant]
     Active Substance: DACARBAZINE
     Indication: NEUROBLASTOMA
     Route: 042
     Dates: start: 20180724, end: 20180728
  2. HOLOXAN [Suspect]
     Active Substance: IFOSFAMIDE
     Indication: NEUROBLASTOMA
     Route: 042
     Dates: start: 20180725, end: 20180728

REACTIONS (6)
  - Paralysis [Not Recovered/Not Resolved]
  - Haematuria [Not Recovered/Not Resolved]
  - Sopor [Not Recovered/Not Resolved]
  - Metabolic acidosis [Not Recovered/Not Resolved]
  - Agitation [Not Recovered/Not Resolved]
  - Hyporesponsive to stimuli [Not Recovered/Not Resolved]

NARRATIVE: CASE EVENT DATE: 20180727
